FAERS Safety Report 23693106 (Version 4)
Quarter: 2024Q2

REPORT INFORMATION
  Report Type: Spontaneous
  Country: US (occurrence: US)
  Receive Date: 20240401
  Receipt Date: 20240607
  Transmission Date: 20240715
  Serious: Yes (Other)
  Sender: FDA-Public Use
  Company Number: US-PFIZER INC-PV202400040484

PATIENT
  Age: 28 Year
  Sex: Female

DRUGS (3)
  1. BESPONSA [Suspect]
     Active Substance: INOTUZUMAB OZOGAMICIN
     Indication: Acute lymphocytic leukaemia recurrent
     Dosage: 1.8MG/M2 CYCLE1, WEEKLY X 3
     Dates: start: 20240104
  2. BESPONSA [Suspect]
     Active Substance: INOTUZUMAB OZOGAMICIN
     Indication: Stem cell transplant
     Dosage: 1.5MG/M2 CYCLE 2,WEEKLY X 3
  3. BESPONSA [Suspect]
     Active Substance: INOTUZUMAB OZOGAMICIN
     Dosage: 0.9 MG

REACTIONS (2)
  - Blindness [Not Recovered/Not Resolved]
  - Weight increased [Unknown]
